FAERS Safety Report 20729042 (Version 2)
Quarter: 2022Q2

REPORT INFORMATION
  Report Type: Spontaneous
  Country: FR (occurrence: FR)
  Receive Date: 20220420
  Receipt Date: 20220428
  Transmission Date: 20220721
  Serious: Yes (Hospitalization, Other)
  Sender: FDA-Public Use
  Company Number: FR-CELLTRION INC.-2022FR004697

PATIENT

DRUGS (7)
  1. RITUXIMAB [Suspect]
     Active Substance: RITUXIMAB
     Indication: Neuromyelitis optica spectrum disorder
     Dosage: 375 MG/M2, UNKNOWN
     Route: 042
     Dates: start: 2013
  2. RITUXIMAB [Suspect]
     Active Substance: RITUXIMAB
     Indication: Immunosuppressant drug therapy
     Dosage: 375 MG/M2, UNKNOWN (2 INFUSIONS WITH AN INTERVAL OF 2 WEEKS)
     Route: 042
  3. RITUXIMAB [Suspect]
     Active Substance: RITUXIMAB
     Dosage: UNK
     Route: 041
  4. MYCOPHENOLATE MOFETIL [Suspect]
     Active Substance: MYCOPHENOLATE MOFETIL
     Indication: Neuromyelitis optica spectrum disorder
     Dosage: UNKNOWN
     Route: 065
     Dates: start: 2012, end: 2016
  5. MYCOPHENOLATE MOFETIL [Suspect]
     Active Substance: MYCOPHENOLATE MOFETIL
     Indication: Immunosuppressant drug therapy
  6. OFATUMUMAB [Concomitant]
     Active Substance: OFATUMUMAB
     Indication: Neuromyelitis optica spectrum disorder
     Dosage: 20 MG, QW (ONE INJECTION OF 20 MG EVERY WEEK DURING 4 WEEKS)
     Route: 065
     Dates: start: 201708, end: 2019
  7. OFATUMUMAB [Concomitant]
     Active Substance: OFATUMUMAB
     Dosage: 20 MG, Q4W (ONE INJECTION OF 20 MG EVERY 4 WEEKS)
     Route: 065

REACTIONS (8)
  - Anaphylactoid reaction [Recovered/Resolved]
  - Infusion related reaction [Recovered/Resolved]
  - Neuromyelitis optica spectrum disorder [Unknown]
  - Device related sepsis [Recovered/Resolved]
  - Condition aggravated [Unknown]
  - Drug specific antibody present [Unknown]
  - Product use in unapproved indication [Unknown]
  - Off label use [Unknown]

NARRATIVE: CASE EVENT DATE: 20140901
